FAERS Safety Report 20101511 (Version 1)
Quarter: 2021Q4

REPORT INFORMATION
  Report Type: Spontaneous
  Country: US (occurrence: None)
  Receive Date: 20211122
  Receipt Date: 20211122
  Transmission Date: 20220303
  Serious: Yes (Other)
  Sender: FDA-Public Use
  Company Number: None

PATIENT
  Sex: Female

DRUGS (2)
  1. ZYPREXA [Suspect]
     Active Substance: OLANZAPINE
  2. ATIVAN [Suspect]
     Active Substance: LORAZEPAM

REACTIONS (3)
  - Drug ineffective [None]
  - Vomiting [None]
  - Hypophagia [None]
